FAERS Safety Report 19938928 (Version 1)
Quarter: 2021Q4

REPORT INFORMATION
  Report Type: Spontaneous
  Country: FR (occurrence: FR)
  Receive Date: 20211011
  Receipt Date: 20211011
  Transmission Date: 20220303
  Serious: Yes (Hospitalization, Other)
  Sender: FDA-Public Use
  Company Number: FR-VALIDUS PHARMACEUTICALS LLC-FR-VDP-2021-003257

PATIENT

DRUGS (11)
  1. FUROSEMIDE [Suspect]
     Active Substance: FUROSEMIDE
     Indication: Infection
     Dosage: 40 MG, QD
     Route: 048
     Dates: end: 20210830
  2. CEFTAZIDIME [Suspect]
     Active Substance: CEFTAZIDIME
     Indication: Infection
     Dosage: 4 G, QD
     Route: 042
     Dates: start: 20210820, end: 20210827
  3. LANSOPRAZOLE [Concomitant]
     Active Substance: LANSOPRAZOLE
     Indication: Product used for unknown indication
     Dosage: UNK
  4. PLAVIX [Concomitant]
     Active Substance: CLOPIDOGREL BISULFATE
     Indication: Product used for unknown indication
     Dosage: 75 MG
  5. ATORVASTATIN [Concomitant]
     Active Substance: ATORVASTATIN
     Indication: Product used for unknown indication
     Dosage: UNK
  6. POLYETHYLENE GLYCOL 4000 [Concomitant]
     Active Substance: POLYETHYLENE GLYCOL 4000
     Indication: Product used for unknown indication
     Dosage: UNK
  7. ASPIRIN [Concomitant]
     Active Substance: ASPIRIN
     Indication: Product used for unknown indication
     Dosage: UNK
  8. GAVISCON [ALUMINIUM HYDROXIDE;CALCIUM CARBONATE;SODIUM ALGINATE;SODIUM [Concomitant]
     Indication: Product used for unknown indication
     Dosage: UNK
  9. JANUVIA [Concomitant]
     Active Substance: SITAGLIPTIN PHOSPHATE
     Indication: Product used for unknown indication
     Dosage: 50 MG
  10. MIANSERIN HYDROCHLORIDE [Concomitant]
     Active Substance: MIANSERIN HYDROCHLORIDE
     Indication: Product used for unknown indication
     Dosage: UNK
  11. AMLODIPINE [Concomitant]
     Active Substance: AMLODIPINE BESYLATE
     Indication: Product used for unknown indication
     Dosage: UNK
     Route: 065

REACTIONS (1)
  - Acute kidney injury [Recovering/Resolving]
